FAERS Safety Report 10193870 (Version 1)
Quarter: 2014Q2

REPORT INFORMATION
  Report Type: Spontaneous
  Country: US (occurrence: US)
  Receive Date: 20140524
  Receipt Date: 20140524
  Transmission Date: 20141212
  Serious: No
  Sender: FDA-Public Use
  Company Number: US-SANOFI-AVENTIS-2013SA071569

PATIENT
  Age: 63 Year
  Sex: Male

DRUGS (1)
  1. LANTUS [Suspect]
     Indication: TYPE 2 DIABETES MELLITUS
     Dosage: TAKEN FROM:6 OR 7 YEARS DOSE:60 UNIT(S)
     Route: 051

REACTIONS (2)
  - Blood glucose increased [Unknown]
  - Incorrect product storage [Unknown]
